FAERS Safety Report 25079964 (Version 2)
Quarter: 2025Q3

REPORT INFORMATION
  Report Type: Spontaneous
  Country: US (occurrence: US)
  Receive Date: 20250314
  Receipt Date: 20250813
  Transmission Date: 20251020
  Serious: No
  Sender: INSUD PHARMA
  Company Number: US-INSUD PHARMA-2503US01628

PATIENT

DRUGS (2)
  1. SLYND [Suspect]
     Active Substance: DROSPIRENONE
     Indication: Contraception
     Route: 048
     Dates: start: 202503, end: 202504
  2. SLYND [Suspect]
     Active Substance: DROSPIRENONE
     Indication: Ovarian cyst

REACTIONS (4)
  - Ear discomfort [Recovered/Resolved]
  - Menstrual clots [Recovered/Resolved]
  - Dysmenorrhoea [Recovered/Resolved]
  - Product prescribing issue [Unknown]

NARRATIVE: CASE EVENT DATE: 20250101
